FAERS Safety Report 8986858 (Version 1)
Quarter: 2012Q4

REPORT INFORMATION
  Report Type: Spontaneous
  Country: US (occurrence: None)
  Receive Date: 20121119
  Receipt Date: 20121119
  Transmission Date: 20130627
  Serious: No
  Sender: FDA-Public Use
  Company Number: 2012-00187

PATIENT
  Age: 64 Year
  Sex: Female

DRUGS (1)
  1. ZICAM COLD REMEDY [Suspect]
     Indication: COLD
     Dosage: 1 lozenge every 2 hours  x2
     Dates: start: 20121110

REACTIONS (1)
  - Ageusia [None]
